FAERS Safety Report 24054913 (Version 2)
Quarter: 2024Q3

REPORT INFORMATION
  Report Type: Spontaneous
  Country: DE (occurrence: DE)
  Receive Date: 20240705
  Receipt Date: 20240708
  Transmission Date: 20241016
  Serious: Yes (Life-Threatening, Hospitalization, Other)
  Sender: MERCK
  Company Number: DE-009507513-2405DEU007676

PATIENT
  Age: 56 Year
  Sex: Female
  Weight: 66 kg

DRUGS (3)
  1. PEMBROLIZUMAB [Suspect]
     Active Substance: PEMBROLIZUMAB
     Indication: Triple negative breast cancer
     Dosage: 200 MILLIGRAM, Q3W
     Route: 042
     Dates: start: 20230921, end: 202310
  2. CARBOPLATIN [Suspect]
     Active Substance: CARBOPLATIN
     Indication: Triple negative breast cancer
     Dosage: UNK
     Dates: start: 202309
  3. PACLITAXEL [Suspect]
     Active Substance: PACLITAXEL
     Indication: Triple negative breast cancer
     Dosage: UNK
     Dates: start: 202309

REACTIONS (33)
  - Hepatitis [Recovered/Resolved]
  - Drug-induced liver injury [Recovered/Resolved]
  - Hepatic failure [Recovered/Resolved]
  - Central venous catheterisation [Unknown]
  - Nausea [Unknown]
  - Vomiting [Unknown]
  - General physical health deterioration [Unknown]
  - Ascites [Unknown]
  - Lumbar vertebral fracture [Unknown]
  - Colitis [Unknown]
  - Cholecystitis [Unknown]
  - Subclavian vein thrombosis [Unknown]
  - Sepsis [Unknown]
  - Hepatic encephalopathy [Unknown]
  - Uterine cancer [Unknown]
  - Delirium [Unknown]
  - Hypokalaemia [Unknown]
  - Dysarthria [Unknown]
  - Axillary vein thrombosis [Unknown]
  - Decreased appetite [Unknown]
  - Pyrexia [Unknown]
  - Asthenia [Unknown]
  - Infection [Unknown]
  - Diarrhoea [Unknown]
  - Pleural effusion [Unknown]
  - Perforation [Unknown]
  - Disturbance in attention [Unknown]
  - Enteritis [Unknown]
  - Generalised oedema [Unknown]
  - Haematoma [Unknown]
  - Abscess [Unknown]
  - Uterine leiomyoma [Unknown]
  - Febrile infection [Unknown]

NARRATIVE: CASE EVENT DATE: 20240101
